FAERS Safety Report 11048124 (Version 4)
Quarter: 2015Q4

REPORT INFORMATION
  Report Type: Spontaneous
  Country: US (occurrence: US)
  Receive Date: 20150420
  Receipt Date: 20151002
  Transmission Date: 20160304
  Serious: No
  Sender: FDA-Public Use
  Company Number: US-PFIZER INC-2015123858

PATIENT
  Age: 75 Year
  Sex: Female
  Weight: 97 kg

DRUGS (6)
  1. SUTENT [Suspect]
     Active Substance: SUNITINIB MALATE
     Dosage: 37.5 MG, CYCLIC, 2 WEEKS ON/1 WEEK OFF
     Dates: start: 20150401, end: 20150801
  2. OMEPRAZOLE. [Concomitant]
     Active Substance: OMEPRAZOLE
     Dosage: UNK
  3. SUTENT [Suspect]
     Active Substance: SUNITINIB MALATE
     Indication: RENAL CANCER STAGE IV
     Dosage: 50 MG, CYCLIC, 28 DAYS ON AND 14 DAYS OFF
     Route: 048
  4. ATENOLOL. [Concomitant]
     Active Substance: ATENOLOL
     Dosage: UNK
  5. LOSARTAN. [Concomitant]
     Active Substance: LOSARTAN
     Dosage: UNK
  6. HCTZ [Concomitant]
     Active Substance: HYDROCHLOROTHIAZIDE
     Dosage: UNK

REACTIONS (10)
  - Renal cancer stage IV [Unknown]
  - Stomatitis [Unknown]
  - Decreased appetite [Recovered/Resolved]
  - Eating disorder [Unknown]
  - Cough [Unknown]
  - Vomiting [Unknown]
  - Fatigue [Unknown]
  - Dysgeusia [Recovered/Resolved]
  - Disease progression [Unknown]
  - Back pain [Unknown]

NARRATIVE: CASE EVENT DATE: 2015
